FAERS Safety Report 4675147-5 (Version None)
Quarter: 2005Q2

REPORT INFORMATION
  Report Type: 
  Country: None (occurrence: None)
  Receive Date: 20050525
  Receipt Date: 20050512
  Transmission Date: 20051028
  Serious: Yes (Hospitalization)
  Sender: FDA-Public Use
  Company Number: HQWYE701412MAY05

PATIENT
  Age: 68 Year
  Sex: Female

DRUGS (5)
  1. CORDARONE [Suspect]
     Indication: ATRIAL FIBRILLATION
     Dosage: SEE IMAGE
     Route: 048
     Dates: start: 20030605, end: 20050101
  2. CORDARONE [Suspect]
     Indication: ATRIAL FIBRILLATION
     Dosage: SEE IMAGE
     Route: 048
     Dates: start: 20050101, end: 20050223
  3. BISOPROLOL ^STADA^ (BISOPROLOL) [Concomitant]
  4. RAMIPRIL [Concomitant]
  5. WARFARIN SODIUM [Concomitant]

REACTIONS (4)
  - COUGH [None]
  - EOSINOPHIL COUNT INCREASED [None]
  - LUNG DISORDER [None]
  - PYREXIA [None]
